FAERS Safety Report 5165544-6 (Version None)
Quarter: 2006Q4

REPORT INFORMATION
  Report Type: 
  Country: None (occurrence: None)
  Receive Date: 20061206
  Receipt Date: 20061128
  Transmission Date: 20070319
  Serious: Yes (Death)
  Sender: FDA-Public Use
  Company Number: CN-ROCHE-473149

PATIENT
  Age: 7 Year
  Sex: Female
  Weight: 20 kg

DRUGS (3)
  1. ROCEPHIN [Suspect]
     Indication: PNEUMONIA
     Dosage: FORM REPORTED AS VIAL.
     Route: 042
     Dates: start: 20061124, end: 20061124
  2. GLUCOSE [Concomitant]
     Dosage: REPORTED AS GLUCOSE 5%.
     Route: 041
     Dates: start: 20061124
  3. SODIUM CHLORIDE [Concomitant]
     Dosage: FORM REPORTED AS INTRAVENOUS DROP INFUSION.
     Route: 041
     Dates: start: 20061124

REACTIONS (3)
  - DRUG INEFFECTIVE [None]
  - HAEMOLYSIS [None]
  - METABOLIC ACIDOSIS [None]
